FAERS Safety Report 7100070-6 (Version None)
Quarter: 2010Q4

REPORT INFORMATION
  Report Type: 
  Country: None (occurrence: None)
  Receive Date: 20101112
  Receipt Date: 20100119
  Transmission Date: 20110411
  Serious: No
  Sender: FDA-Public Use
  Company Number: A0667088A

PATIENT
  Age: 83 Year
  Sex: Female

DRUGS (2)
  1. COREG [Suspect]
     Dosage: 12.5MG UNKNOWN
     Route: 065
  2. LANOXIN [Suspect]
     Dosage: .125MG UNKNOWN
     Route: 065

REACTIONS (2)
  - CARDIAC DISORDER [None]
  - EMOTIONAL DISTRESS [None]
